FAERS Safety Report 19994800 (Version 1)
Quarter: 2021Q4

REPORT INFORMATION
  Report Type: Spontaneous
  Country: FR (occurrence: FR)
  Receive Date: 20211026
  Receipt Date: 20211026
  Transmission Date: 20220304
  Serious: Yes (Life-Threatening, Hospitalization)
  Sender: FDA-Public Use
  Company Number: None

PATIENT
  Age: 69 Year
  Sex: Male
  Weight: 62.5 kg

DRUGS (5)
  1. PEMETREXED [Suspect]
     Active Substance: PEMETREXED
     Indication: Lung adenocarcinoma
     Dosage: UNK UNK, Q3W
     Route: 041
     Dates: start: 20210422, end: 20210604
  2. CARBOPLATIN [Suspect]
     Active Substance: CARBOPLATIN
     Indication: Lung adenocarcinoma
     Dosage: UNK UNK, Q3W
     Route: 041
     Dates: start: 20210422, end: 20210604
  3. OFLOXACIN [Suspect]
     Active Substance: OFLOXACIN
     Indication: Pneumonia
     Dosage: UNK
     Route: 048
     Dates: start: 20210606, end: 20210612
  4. KEYTRUDA [Suspect]
     Active Substance: PEMBROLIZUMAB
     Indication: Lung adenocarcinoma
     Dosage: UNK
     Route: 041
     Dates: start: 20210604, end: 20210604
  5. SYMBICORT [Concomitant]
     Active Substance: BUDESONIDE\FORMOTEROL FUMARATE DIHYDRATE
     Indication: Chronic obstructive pulmonary disease
     Dosage: UNK
     Route: 055

REACTIONS (1)
  - Toxic epidermal necrolysis [Recovering/Resolving]

NARRATIVE: CASE EVENT DATE: 20210608
